FAERS Safety Report 5891493-1 (Version None)
Quarter: 2008Q3

REPORT INFORMATION
  Report Type: 
  Country: None (occurrence: None)
  Receive Date: 20080910
  Receipt Date: 20080829
  Transmission Date: 20090109
  Serious: Yes (Other)
  Sender: FDA-Public Use
  Company Number: AEITA200800199

PATIENT
  Age: 35 Year

DRUGS (3)
  1. IGIV (MANUFACTURER UNKNOWN) (IMMUNE GLOBULIN IV  (HUMAN), CAPRYLATE/CH [Suspect]
     Indication: IMMUNODEFICIENCY COMMON VARIABLE
     Dosage: IV
     Route: 042
  2. CORTICOSTEROID NOS [Concomitant]
  3. ANTIHISTAMINES [Concomitant]

REACTIONS (4)
  - CHILLS [None]
  - HYPOTENSION [None]
  - NAUSEA [None]
  - PYREXIA [None]
